FAERS Safety Report 24575604 (Version 1)
Quarter: 2024Q4

REPORT INFORMATION
  Report Type: Spontaneous
  Country: GB (occurrence: GB)
  Receive Date: 20241104
  Receipt Date: 20241104
  Transmission Date: 20250115
  Serious: Yes (Other)
  Sender: ADVANZ PHARMA
  Company Number: GB-MLMSERVICE-20241016-PI229911-00270-2

PATIENT

DRUGS (13)
  1. PREDNISOLONE [Suspect]
     Active Substance: PREDNISOLONE
     Indication: Sarcoidosis
     Dosage: 10 MG, QD
     Dates: start: 2006
  2. PREDNISOLONE [Suspect]
     Active Substance: PREDNISOLONE
     Dosage: 5 MG, QD
  3. METHOTREXATE [Suspect]
     Active Substance: METHOTREXATE
     Indication: Sarcoidosis
     Dosage: UNK
     Dates: start: 201302, end: 201305
  4. METHYLPREDNISOLONE [Suspect]
     Active Substance: METHYLPREDNISOLONE
     Indication: Sarcoidosis
     Dosage: HIGH STEROID DOSES
     Dates: start: 2006
  5. AZATHIOPRINE [Concomitant]
     Active Substance: AZATHIOPRINE
     Indication: Sarcoidosis
     Dosage: UNK
     Dates: start: 201308, end: 201404
  6. AZATHIOPRINE [Concomitant]
     Active Substance: AZATHIOPRINE
     Dosage: UNK
     Dates: start: 201610, end: 202301
  7. HYDROXYCHLOROQUINE [Concomitant]
     Active Substance: HYDROXYCHLOROQUINE
     Indication: Sarcoidosis
     Dosage: UNK
     Dates: start: 201402, end: 201404
  8. MYCOPHENOLATE MOFETIL [Concomitant]
     Active Substance: MYCOPHENOLATE MOFETIL
     Indication: Sarcoidosis
     Dosage: UNK
     Dates: start: 201406, end: 201408
  9. INFLIXIMAB [Concomitant]
     Active Substance: INFLIXIMAB
     Indication: Sarcoidosis
     Dosage: UNK
     Dates: start: 201409, end: 201504
  10. THALIDOMIDE [Concomitant]
     Active Substance: THALIDOMIDE
     Indication: Sarcoidosis
     Dosage: UNK
     Dates: start: 201602
  11. RITUXIMAB [Concomitant]
     Active Substance: RITUXIMAB
     Indication: Sarcoidosis
     Dosage: 2 DOSES
     Dates: start: 2016
  12. RITUXIMAB [Concomitant]
     Active Substance: RITUXIMAB
     Dosage: 2 DOSES
     Dates: start: 2021
  13. TOFACITINIB [Concomitant]
     Active Substance: TOFACITINIB
     Indication: Sarcoidosis
     Dosage: 5 MG, BID
     Dates: start: 202207

REACTIONS (7)
  - Psychotic disorder [Unknown]
  - Lower respiratory tract infection [Unknown]
  - Personality change [Unknown]
  - Nightmare [Unknown]
  - Headache [Unknown]
  - Insomnia [Unknown]
  - Drug ineffective [Unknown]
